FAERS Safety Report 4377719-4 (Version None)
Quarter: 2004Q2

REPORT INFORMATION
  Report Type: 
  Country: None (occurrence: None)
  Receive Date: 20040608
  Receipt Date: 20040528
  Transmission Date: 20050107
  Serious: Yes (Other)
  Sender: FDA-Public Use
  Company Number: STA-AE-04-MTX-241

PATIENT
  Sex: Male

DRUGS (7)
  1. METHOTREXATE [Suspect]
     Indication: B PRECURSOR TYPE ACUTE LEUKAEMIA
     Dosage: WEEKLY, MEDIUM RISK B ARM OF THE ALL-BFM 95 PROTOCOL, ORAL
     Route: 048
  2. CYTARABINE [Suspect]
     Indication: B PRECURSOR TYPE ACUTE LEUKAEMIA
     Dosage: MEDIUM RISK B ARM OF THE ALL-BFM 95 PROTOCOL, INTRATHECAL
     Route: 037
  3. METHOTREXATE [Suspect]
     Indication: B PRECURSOR TYPE ACUTE LEUKAEMIA
     Dosage: MEDIUM RISK B ARM OF THE ALL-BFM 95 PROTOCOL, INTRATHECAL
     Route: 037
  4. HYDROCORTISONE [Concomitant]
  5. DEXAMETHASONE [Concomitant]
  6. VINCRISTINE [Concomitant]
  7. MERCAPTOPURINE [Concomitant]

REACTIONS (3)
  - HEADACHE [None]
  - SUBDURAL HYGROMA [None]
  - VOMITING [None]
